FAERS Safety Report 5186324-1 (Version None)
Quarter: 2006Q4

REPORT INFORMATION
  Report Type: 
  Country: None (occurrence: None)
  Receive Date: 20061220
  Receipt Date: 20051214
  Transmission Date: 20070319
  Serious: Yes (Other)
  Sender: FDA-Public Use
  Company Number: US-ELI_LILLY_AND_COMPANY-US200512002525

PATIENT
  Age: 32 Year
  Sex: Female

DRUGS (4)
  1. HUMULIN R [Suspect]
     Indication: DIABETES MELLITUS
     Dosage: U-100
     Dates: start: 19860101, end: 20051001
  2. HUMULIN R [Suspect]
     Dosage: U-500
     Dates: start: 20051001
  3. ALDOMET [Concomitant]
     Indication: HYPERTENSION
     Dosage: 500 MG, 2/D
  4. FERROUS SULFATE TAB [Concomitant]

REACTIONS (11)
  - BLOOD GLUCOSE FLUCTUATION [None]
  - CAESAREAN SECTION [None]
  - DIABETES MELLITUS INADEQUATE CONTROL [None]
  - DIABETIC NEPHROPATHY [None]
  - DRUG EXPOSURE DURING PREGNANCY [None]
  - HYPERTENSION [None]
  - PRE-ECLAMPSIA [None]
  - PREGNANCY [None]
  - PREMATURE BABY [None]
  - PULMONARY HYPERTENSION [None]
  - SLEEP APNOEA SYNDROME [None]
